FAERS Safety Report 5608102-9 (Version None)
Quarter: 2008Q1

REPORT INFORMATION
  Report Type: 
  Country: None (occurrence: None)
  Receive Date: 20080125
  Receipt Date: 20080115
  Transmission Date: 20080703
  Serious: Yes (Other)
  Sender: FDA-Public Use
  Company Number: 2008AP000210

PATIENT
  Age: 22 Year
  Sex: Female

DRUGS (11)
  1. PAROXETINE HCL [Suspect]
     Indication: DEPRESSION
     Dosage: 20 MG; QD PO, 40 MG; PO; QD, 20 MG; PO; QD
     Route: 048
     Dates: start: 19980429
  2. PAROXETINE HCL [Suspect]
     Indication: DEPRESSION
     Dosage: 20 MG; QD PO, 40 MG; PO; QD, 20 MG; PO; QD
     Route: 048
     Dates: start: 19980429
  3. PAROXETINE HCL [Suspect]
     Indication: DEPRESSION
     Dosage: 20 MG; QD PO, 40 MG; PO; QD, 20 MG; PO; QD
     Route: 048
     Dates: start: 20020628
  4. DIAZEPAM [Concomitant]
  5. VENLAFAXINE HCL [Concomitant]
  6. LOFEPRAMINE (LOFEPRAMINE) [Concomitant]
  7. LORAZEPAM [Concomitant]
  8. LORMETAZEPAM (LORMETAZEPAM) [Concomitant]
  9. DOTHIEPIN HYDROCHLORIDE [Concomitant]
  10. REBOXETINE (REBOXETINE) [Concomitant]
  11. AMITRIPTYLINE HCL [Concomitant]

REACTIONS (24)
  - AGGRESSION [None]
  - AGITATION [None]
  - BALANCE DISORDER [None]
  - CONFUSIONAL STATE [None]
  - DEPRESSED MOOD [None]
  - DIARRHOEA [None]
  - DIZZINESS [None]
  - DYSKINESIA [None]
  - FATIGUE [None]
  - HAIR DISORDER [None]
  - HEAD INJURY [None]
  - HYPERHIDROSIS [None]
  - INFLUENZA [None]
  - MEMORY IMPAIRMENT [None]
  - PANIC ATTACK [None]
  - PARAESTHESIA [None]
  - SKIN INJURY [None]
  - SLEEP DISORDER [None]
  - SOMNOLENCE [None]
  - SUICIDAL BEHAVIOUR [None]
  - VERTIGO [None]
  - VISION BLURRED [None]
  - VOMITING [None]
  - WITHDRAWAL SYNDROME [None]
